FAERS Safety Report 5898020-3 (Version None)
Quarter: 2008Q3

REPORT INFORMATION
  Report Type: 
  Country: None (occurrence: None)
  Receive Date: 20080917
  Receipt Date: 20080403
  Transmission Date: 20090109
  Serious: Yes (Other)
  Sender: FDA-Public Use
  Company Number: PHEH2008US03455

PATIENT

DRUGS (1)
  1. FEMARA [Suspect]
     Indication: HEPATIC NEOPLASM MALIGNANT

REACTIONS (2)
  - BLOOD OESTROGEN DECREASED [None]
  - TUMOUR MARKER INCREASED [None]
